FAERS Safety Report 9603183 (Version 2)
Quarter: 2013Q4

REPORT INFORMATION
  Report Type: Spontaneous
  Country: NL (occurrence: NL)
  Receive Date: 20131007
  Receipt Date: 20131007
  Transmission Date: 20140711
  Serious: Yes (Hospitalization)
  Sender: FDA-Public Use
  Company Number: NL-PFIZER INC-2012180786

PATIENT
  Age: 76 Year
  Sex: Male

DRUGS (2)
  1. ATORVASTATIN PFIZER [Suspect]
     Dosage: 20 MG, UNK
     Dates: start: 201207, end: 201301
  2. CEDOCARD [Suspect]
     Dosage: UNK

REACTIONS (5)
  - Angiopathy [Unknown]
  - Malaise [Unknown]
  - Vomiting [Unknown]
  - Oropharyngeal pain [Unknown]
  - Abdominal pain upper [Unknown]
